FAERS Safety Report 18641201 (Version 2)
Quarter: 2020Q4

REPORT INFORMATION
  Report Type: Report from Study
  Country: US (occurrence: US)
  Receive Date: 20201221
  Receipt Date: 20201222
  Transmission Date: 20210114
  Serious: No
  Sender: FDA-Public Use
  Company Number: US-SA-2020SA362723

PATIENT

DRUGS (1)
  1. DRONEDARONE [Suspect]
     Active Substance: DRONEDARONE
     Indication: ATRIAL FIBRILLATION
     Dosage: 400 MG, BID (IN THE MORNING WITH BREAKFAST AND IN THE EVENING WITH DINNER)
     Route: 048
     Dates: start: 201910

REACTIONS (2)
  - Sinusitis [Unknown]
  - Hypersensitivity [Unknown]
